FAERS Safety Report 23980821 (Version 1)
Quarter: 2024Q2

REPORT INFORMATION
  Report Type: Other
  Country: CA (occurrence: CA)
  Receive Date: 20240617
  Receipt Date: 20240617
  Transmission Date: 20240716
  Serious: Yes (Other)
  Sender: FDA-Public Use
  Company Number: CA-INTERCEPT-PM2022000877

PATIENT
  Age: 62 Year
  Sex: Female

DRUGS (4)
  1. OCALIVA [Suspect]
     Active Substance: OBETICHOLIC ACID
     Indication: Primary biliary cholangitis
     Dosage: 5 MILLIGRAM, QD
     Route: 048
     Dates: start: 20180224, end: 201811
  2. OCALIVA [Suspect]
     Active Substance: OBETICHOLIC ACID
     Dosage: 5 MILLIGRAM, QD
     Route: 048
  3. URSO [Concomitant]
     Active Substance: URSODIOL
     Dosage: 500 MG, QD (EVERY MORNING)
  4. URSO [Concomitant]
     Active Substance: URSODIOL
     Dosage: 375 MG, QD (EVERY AFTERNOON OR EVENING)

REACTIONS (2)
  - Peripheral artery occlusion [Recovered/Resolved]
  - COVID-19 [Unknown]

NARRATIVE: CASE EVENT DATE: 20220425
